FAERS Safety Report 17452407 (Version 1)
Quarter: 2020Q1

REPORT INFORMATION
  Report Type: Spontaneous
  Country: CN (occurrence: CN)
  Receive Date: 20200224
  Receipt Date: 20200224
  Transmission Date: 20200409
  Serious: Yes (Hospitalization)
  Sender: FDA-Public Use
  Company Number: CN-PFIZER INC-2020078523

PATIENT
  Age: 62 Year
  Sex: Female
  Weight: 58.5 kg

DRUGS (2)
  1. BO BEI [Suspect]
     Active Substance: CARBOPLATIN
     Indication: OVARIAN CANCER
     Dosage: 500 MG, 1X/DAY
     Route: 041
     Dates: start: 20200121, end: 20200121
  2. ANZATAX (PACLITAXEL) [Suspect]
     Active Substance: PACLITAXEL
     Indication: OVARIAN CANCER
     Dosage: 210 MG, 1X/DAY
     Route: 041
     Dates: start: 20200121, end: 20200121

REACTIONS (5)
  - Abdominal pain [Unknown]
  - Oedema peripheral [Unknown]
  - Neutrophil count decreased [Recovering/Resolving]
  - Abdominal distension [Unknown]
  - White blood cell count decreased [Recovering/Resolving]

NARRATIVE: CASE EVENT DATE: 20200127
